FAERS Safety Report 10364090 (Version 1)
Quarter: 2014Q3

REPORT INFORMATION
  Report Type: Spontaneous
  Country: DE (occurrence: DE)
  Receive Date: 20140806
  Receipt Date: 20140806
  Transmission Date: 20150326
  Serious: Yes (Hospitalization)
  Sender: FDA-Public Use
  Company Number: DE-ROCHE-1445057

PATIENT
  Age: 61 Year
  Sex: Male

DRUGS (1)
  1. AVASTIN [Suspect]
     Active Substance: BEVACIZUMAB
     Indication: PRODUCT USED FOR UNKNOWN INDICATION
     Dosage: ONCE, IN 0.05 ML
     Route: 050
     Dates: start: 20140714, end: 20140714

REACTIONS (3)
  - Fibrin deposition on lens postoperative [Unknown]
  - Vitreal cells [Unknown]
  - Off label use [Unknown]

NARRATIVE: CASE EVENT DATE: 20140717
